FAERS Safety Report 21728801 (Version 6)
Quarter: 2023Q1

REPORT INFORMATION
  Report Type: Report from Study
  Country: US (occurrence: US)
  Receive Date: 20221214
  Receipt Date: 20230109
  Transmission Date: 20230418
  Serious: Yes (Hospitalization, Other)
  Sender: FDA-Public Use
  Company Number: US-GILEAD-2022-0607135

PATIENT
  Sex: Female

DRUGS (8)
  1. AMBRISENTAN [Suspect]
     Active Substance: AMBRISENTAN
     Indication: Pulmonary hypertension
     Dosage: 10 MG, QD
     Route: 048
     Dates: start: 20190722
  2. AMBRISENTAN [Suspect]
     Active Substance: AMBRISENTAN
     Indication: Idiopathic pulmonary fibrosis
  3. TYVASO [Concomitant]
     Active Substance: TREPROSTINIL
  4. SILDENAFIL [Concomitant]
     Active Substance: SILDENAFIL
  5. ELIQUIS [Concomitant]
     Active Substance: APIXABAN
  6. AMLODIPINE [Concomitant]
     Active Substance: AMLODIPINE BESYLATE
  7. TADALAFIL [Concomitant]
     Active Substance: TADALAFIL
  8. ADCIRCA [Concomitant]
     Active Substance: TADALAFIL

REACTIONS (12)
  - Pneumonia [Unknown]
  - Cardiac failure congestive [Unknown]
  - Hypervolaemia [Unknown]
  - Left ventricular failure [Unknown]
  - Heart rate increased [Unknown]
  - Dyspnoea [Unknown]
  - Palpitations [Unknown]
  - Ill-defined disorder [Not Recovered/Not Resolved]
  - Poor quality sleep [Unknown]
  - Renal disorder [Unknown]
  - Unevaluable event [Unknown]
  - Nasal congestion [Unknown]
